FAERS Safety Report 7955265-6 (Version None)
Quarter: 2011Q4

REPORT INFORMATION
  Report Type: 
  Country: None (occurrence: None)
  Receive Date: 20111202
  Receipt Date: 20111130
  Transmission Date: 20120403
  Serious: Yes (Hospitalization, Other)
  Sender: FDA-Public Use
  Company Number: DE-ABBOTT-11P-062-0871468-00

PATIENT
  Sex: Male

DRUGS (1)
  1. HUMIRA [Suspect]
     Indication: CROHN'S DISEASE
     Route: 058
     Dates: start: 20091201, end: 20110701

REACTIONS (10)
  - ENDOSCOPY GASTROINTESTINAL [None]
  - TOOTH LOSS [None]
  - PANCREATITIS [None]
  - RASH [None]
  - GINGIVAL ATROPHY [None]
  - ALOPECIA [None]
  - ABDOMINAL PAIN [None]
  - DYSPNOEA [None]
  - INTESTINAL RESECTION [None]
  - ASTHENIA [None]
